FAERS Safety Report 10421039 (Version 1)
Quarter: 2014Q3

REPORT INFORMATION
  Report Type: Spontaneous
  Country: US (occurrence: None)
  Receive Date: 20140828
  Receipt Date: 20140828
  Transmission Date: 20150326
  Serious: Yes (Other)
  Sender: FDA-Public Use
  Company Number: 2014US0300

PATIENT
  Age: 12 Year
  Sex: Female

DRUGS (2)
  1. ANAKINRA (ANAKINRA) [Suspect]
     Active Substance: ANAKINRA
     Indication: JUVENILE IDIOPATHIC ARTHRITIS
  2. CORTICOSTEROIDS [Concomitant]
     Active Substance: CORTICOSTEROID NOS

REACTIONS (7)
  - Weight increased [None]
  - Myopathy [None]
  - Hypertension [None]
  - Cutaneous vasculitis [None]
  - Diabetes mellitus [None]
  - Histiocytosis haematophagic [None]
  - Impaired healing [None]
